FAERS Safety Report 6902307-2 (Version None)
Quarter: 2010Q3

REPORT INFORMATION
  Report Type: 
  Country: None (occurrence: None)
  Receive Date: 20100803
  Receipt Date: 20080516
  Transmission Date: 20110219
  Serious: No
  Sender: FDA-Public Use
  Company Number: US-PFIZER INC-2008042602

PATIENT
  Sex: Male
  Weight: 54 kg

DRUGS (4)
  1. LYRICA [Suspect]
     Indication: NEUROPATHY PERIPHERAL
     Dates: start: 20080201, end: 20080513
  2. WARFARIN SODIUM [Concomitant]
  3. DIGITEK [Concomitant]
  4. OMEPRAZOLE [Concomitant]

REACTIONS (3)
  - BRUXISM [None]
  - MENTAL DISORDER [None]
  - NERVOUSNESS [None]
